FAERS Safety Report 12907301 (Version 1)
Quarter: 2016Q4

REPORT INFORMATION
  Report Type: Spontaneous
  Country: US (occurrence: US)
  Receive Date: 20161103
  Receipt Date: 20161103
  Transmission Date: 20170207
  Serious: No
  Sender: FDA-Public Use
  Company Number: US-009507513-1610USA009308

PATIENT
  Age: 61 Year
  Sex: Female

DRUGS (1)
  1. ZEPATIER [Suspect]
     Active Substance: ELBASVIR\GRAZOPREVIR
     Indication: HEPATITIS C
     Dosage: 50/100 MG, UNK
     Route: 048
     Dates: start: 201609, end: 201609

REACTIONS (6)
  - Foreign body [Recovered/Resolved]
  - Retching [Recovered/Resolved]
  - Feeling abnormal [Unknown]
  - Incorrect dose administered [Unknown]
  - Cough [Recovered/Resolved]
  - Wrong technique in product usage process [Unknown]

NARRATIVE: CASE EVENT DATE: 201609
